FAERS Safety Report 7495122-5 (Version None)
Quarter: 2011Q2

REPORT INFORMATION
  Report Type: 
  Country: None (occurrence: None)
  Receive Date: 20110520
  Receipt Date: 20110513
  Transmission Date: 20111010
  Serious: Yes (Other)
  Sender: FDA-Public Use
  Company Number: CA-GENENTECH-319076

PATIENT
  Sex: Female

DRUGS (3)
  1. RITUXAN [Suspect]
     Indication: ILL-DEFINED DISORDER
     Dosage: UNK
     Route: 065
  2. BENADRYL [Concomitant]
     Indication: PREMEDICATION
     Dosage: UNK
  3. ACETAMINOPHEN [Concomitant]
     Indication: PREMEDICATION
     Dosage: UNK

REACTIONS (1)
  - HYPERSENSITIVITY [None]
